FAERS Safety Report 8760449 (Version 1)
Quarter: 2012Q4

REPORT INFORMATION
  Report Type: Report from Study
  Country: JP (occurrence: JP)
  Receive Date: 20120830
  Receipt Date: 20120830
  Transmission Date: 20130627
  Serious: Yes (Hospitalization)
  Sender: FDA-Public Use
  Company Number: JP-ELI_LILLY_AND_COMPANY-JP201208006166

PATIENT
  Age: 45 Year
  Sex: Male
  Weight: 99 kg

DRUGS (4)
  1. EXENATIDE [Suspect]
     Indication: DIABETES MELLITUS
     Dosage: 5 ug, bid
     Route: 058
     Dates: start: 20110929, end: 20111124
  2. EXENATIDE [Suspect]
     Dosage: 10 ug, bid
     Route: 058
     Dates: start: 20111125, end: 20120525
  3. AMARYL [Concomitant]
     Indication: DIABETES MELLITUS
     Dosage: UNK
     Route: 048
     Dates: start: 20110315, end: 20120525
  4. METFORMIN HYDROCHLORIDE [Concomitant]
     Indication: DIABETES MELLITUS
     Dosage: UNK
     Route: 048
     Dates: start: 20110901, end: 20120525

REACTIONS (1)
  - Diabetic ketoacidosis [Recovered/Resolved]
